FAERS Safety Report 4678162-0 (Version None)
Quarter: 2005Q2

REPORT INFORMATION
  Report Type: 
  Country: None (occurrence: None)
  Receive Date: 20050527
  Receipt Date: 20050516
  Transmission Date: 20051028
  Serious: Yes (Other)
  Sender: FDA-Public Use
  Company Number: 213097

PATIENT
  Age: 55 Year
  Sex: Female

DRUGS (1)
  1. MABTHERA (RITUXIMAB) CONC FOR SOLUTION FOR INFUSION [Suspect]
     Dosage: 375 MG/M2, INTRAVENOUS
     Route: 042
     Dates: start: 19981201

REACTIONS (1)
  - HAEMORRHOIDAL HAEMORRHAGE [None]
